FAERS Safety Report 9202198 (Version 1)
Quarter: 2013Q2

REPORT INFORMATION
  Report Type: Spontaneous
  Country: DE (occurrence: HR)
  Receive Date: 20130401
  Receipt Date: 20130401
  Transmission Date: 20140414
  Serious: Yes (Other)
  Sender: FDA-Public Use
  Company Number: 2013SP000888

PATIENT
  Age: 67 Year
  Sex: Female

DRUGS (5)
  1. ALVESCO [Suspect]
     Indication: ASTHMA
     Route: 055
     Dates: start: 201211, end: 201211
  2. ALVESCO [Suspect]
     Indication: ASTHMA
     Route: 055
     Dates: start: 201211, end: 201211
  3. FLONIDAN [Concomitant]
     Indication: PRODUCT USED FOR UNKNOWN INDICATION
  4. SERETIDE [Concomitant]
     Indication: PRODUCT USED FOR UNKNOWN INDICATION
     Route: 055
     Dates: start: 2009
  5. DIURETICS [Concomitant]
     Indication: PRODUCT USED FOR UNKNOWN INDICATION

REACTIONS (5)
  - Malaise [Recovered/Resolved]
  - Choking [Recovered/Resolved]
  - Bronchospasm paradoxical [Recovered/Resolved]
  - Drug ineffective [None]
  - Asphyxia [None]
